FAERS Safety Report 11578284 (Version 1)
Quarter: 2015Q3

REPORT INFORMATION
  Report Type: Spontaneous
  Country: US (occurrence: US)
  Receive Date: 20150930
  Receipt Date: 20150930
  Transmission Date: 20151125
  Serious: Yes (Death, Hospitalization)
  Sender: FDA-Public Use
  Company Number: US-LPDUSPRD-20140835

PATIENT
  Age: 63 Year
  Sex: Female
  Weight: 61.9 kg

DRUGS (33)
  1. CINACALCET [Concomitant]
     Active Substance: CINACALCET
     Dosage: INFORMATION NOT PROVIDED
     Route: 065
  2. PARICALCITOL. [Concomitant]
     Active Substance: PARICALCITOL
     Dosage: DOSE NOT PROVIDED
     Route: 065
  3. PHOSLO [Concomitant]
     Active Substance: CALCIUM ACETATE
     Dosage: INFORMATION NOT PROVIDED
     Route: 065
  4. CYCLOBENZAPRINE [Concomitant]
     Active Substance: CYCLOBENZAPRINE
     Dosage: INFORMATION NOT PROVIDED
     Route: 065
  5. PREDNISONE ACETATE [Concomitant]
     Active Substance: PREDNISONE ACETATE
     Dosage: INFORMATION NOT PROVIDED
     Route: 065
  6. LABETALOL [Concomitant]
     Active Substance: LABETALOL\LABETALOL HYDROCHLORIDE
     Dosage: INFORMATION NOT PROVIDED
     Route: 065
  7. NORMODYNE [Concomitant]
     Active Substance: LABETALOL HYDROCHLORIDE
     Dosage: DOSE NOT PROVIDED
     Route: 065
  8. NATURALYTE BICARBONATE AND DRY ACID [Suspect]
     Active Substance: ACETIC ACID\SODIUM ACETATE
     Dosage: INFORMATION NOT PROVIDED
     Route: 065
  9. PLAVIX [Concomitant]
     Active Substance: CLOPIDOGREL BISULFATE
     Dosage: INFORMATION NOT PROVIDED
     Route: 065
  10. COUMADIN [Concomitant]
     Active Substance: WARFARIN SODIUM
     Dosage: INFORMATION NOT PROVIDED
     Route: 065
  11. VITAMIN B COMPLEX [Concomitant]
     Active Substance: CYANOCOBALAMIN\DEXPANTHENOL\NIACINAMIDE\PYRIDOXINE HYDROCHLORIDE\RIBOFLAVIN 5^-PHOSPHATE SODIUM\THIAMINE HYDROCHLORIDE\VITAMIN B COMPLEX
     Dosage: DOSE NOT PROVIDED
     Route: 065
  12. ACETAMINOPHEN. [Concomitant]
     Active Substance: ACETAMINOPHEN
     Dosage: INFORMATION NOT PROVIDED
     Route: 065
  13. VENOFER [Suspect]
     Active Substance: IRON SUCROSE
     Dosage: ALGORITHM USED TO DET. DOSE
     Route: 042
     Dates: start: 201112, end: 201412
  14. MELATONIN [Concomitant]
     Active Substance: MELATONIN
     Dosage: INFORMATION NOT PROVIDED
     Route: 065
  15. SENSIPAR [Concomitant]
     Active Substance: CINACALCET HYDROCHLORIDE
     Dosage: INFORMATION NOT PROVIDED
     Route: 065
  16. ZEMPLAR [Concomitant]
     Active Substance: PARICALCITOL
     Dosage: INFORMATION NOT PROVIDED
     Route: 065
  17. PRILOSEC [Concomitant]
     Active Substance: OMEPRAZOLE MAGNESIUM
     Dosage: INFORMATION NOT PROVIDED
     Route: 065
  18. NITROGLYCERIN. [Concomitant]
     Active Substance: NITROGLYCERIN
     Dosage: DOSE NOT PROVIDED
     Route: 065
  19. VITAMIN C-FOLIC ACID [Concomitant]
     Dosage: DOSE NOT PROVIDED
     Route: 065
  20. GENTAMICIN OINTMENT [Concomitant]
     Dosage: INFORMATION NOT PROVIDED
     Route: 065
  21. FRESENIUS 2008T HEMODIALYSIS SYSTEM [Suspect]
     Active Substance: DEVICE
     Dosage: INFORMATION NOT PROVIDED
     Route: 065
  22. PERCOCET [Concomitant]
     Active Substance: ACETAMINOPHEN\OXYCODONE HYDROCHLORIDE
     Dosage: INFORMATION NOT PROVIDED
     Route: 065
  23. OXYCODONE [Concomitant]
     Active Substance: OXYCODONE
     Dosage: INFORMATION NOT PROVIDED
     Route: 065
  24. GRANUFLO [Suspect]
     Active Substance: ACETIC ACID\SODIUM ACETATE
     Dosage: INFORMATION NOT PROVIDED
     Route: 065
  25. CARVEDILOL. [Concomitant]
     Active Substance: CARVEDILOL
     Dosage: INFORMATION NOT PROVIDED
     Route: 065
  26. MIRALAX [Concomitant]
     Active Substance: POLYETHYLENE GLYCOL 3350
     Dosage: INFORMATION NOT PROVIDED
     Route: 065
  27. NITOR-DUR PATCH [Concomitant]
     Dosage: INFORMATION NOT PROVIDED
     Route: 065
  28. NEPHRO CAPS [Concomitant]
     Dosage: INFORMATION NOT PROVIDED
     Route: 065
  29. ZOLOFT [Concomitant]
     Active Substance: SERTRALINE HYDROCHLORIDE
     Dosage: INFORMATION NOT PROVIDED
     Route: 065
  30. LIPITOR [Concomitant]
     Active Substance: ATORVASTATIN CALCIUM
     Dosage: INFORMATION NOT PROVIDED
     Route: 065
  31. FRESENIUS DIALYZER [Suspect]
     Active Substance: DEVICE
     Dosage: INFORMATION NOT PROVIDED
     Route: 065
  32. FMC BLOODLINES [Suspect]
     Active Substance: DEVICE
     Dosage: INFORMATION NOT PROVIDED
     Route: 065
  33. BENADRYL [Concomitant]
     Active Substance: DIPHENHYDRAMINE HYDROCHLORIDE
     Dosage: INFORMATION NOT PROVIDED
     Route: 065

REACTIONS (14)
  - Cerebrovascular accident [Unknown]
  - Aortic aneurysm [Unknown]
  - Gastrointestinal haemorrhage [Recovered/Resolved]
  - Coronary artery disease [Unknown]
  - Graft infection [Unknown]
  - Myocardial infarction [Fatal]
  - Sepsis [Unknown]
  - Bradycardia [Unknown]
  - Cardiomegaly [Unknown]
  - Proteus infection [Unknown]
  - Cardiac arrest [Fatal]
  - Pulmonary hypertension [Unknown]
  - Haemorrhage [Unknown]
  - Poor peripheral circulation [Unknown]

NARRATIVE: CASE EVENT DATE: 201408
